FAERS Safety Report 5826262-1 (Version None)
Quarter: 2008Q3

REPORT INFORMATION
  Report Type: 
  Country: None (occurrence: None)
  Receive Date: 20080729
  Receipt Date: 20080717
  Transmission Date: 20090109
  Serious: Yes (Other)
  Sender: FDA-Public Use
  Company Number: US-PFIZER INC-2008047305

PATIENT
  Sex: Male
  Weight: 56.7 kg

DRUGS (2)
  1. DILANTIN SUSPENSION [Suspect]
     Indication: GRAND MAL CONVULSION
     Route: 048
  2. PHENYTOIN [Suspect]

REACTIONS (8)
  - ABNORMAL BEHAVIOUR [None]
  - ATAXIA [None]
  - DYSSTASIA [None]
  - DYSTONIA [None]
  - FALL [None]
  - HYPOTONIA [None]
  - LETHARGY [None]
  - MALABSORPTION [None]
